FAERS Safety Report 14207400 (Version 1)
Quarter: 2017Q4

REPORT INFORMATION
  Report Type: Spontaneous
  Country: CN (occurrence: CN)
  Receive Date: 20171121
  Receipt Date: 20171121
  Transmission Date: 20180321
  Serious: Yes (Death, Other)
  Sender: FDA-Public Use
  Company Number: CN-ROCHE-2021186

PATIENT
  Age: 47 Year
  Sex: Male
  Weight: 58 kg

DRUGS (14)
  1. CAPECITABINE. [Concomitant]
     Active Substance: CAPECITABINE
     Route: 048
  2. FLUOROURACIL. [Concomitant]
     Active Substance: FLUOROURACIL
     Dosage: CONTINOUS INTRAVENOUS FOR 23 HOURS
     Route: 042
  3. CALCIUM FOLINATE [Concomitant]
     Active Substance: LEUCOVORIN CALCIUM
     Indication: COLON CANCER STAGE IV
     Route: 041
  4. FLUOROURACIL. [Concomitant]
     Active Substance: FLUOROURACIL
     Indication: COLON CANCER STAGE IV
     Route: 040
  5. FLUOROURACIL. [Concomitant]
     Active Substance: FLUOROURACIL
     Route: 033
  6. OXALIPLATIN. [Concomitant]
     Active Substance: OXALIPLATIN
     Route: 041
  7. BEVACIZUMAB. [Suspect]
     Active Substance: BEVACIZUMAB
     Route: 041
  8. IRINOTECAN [Concomitant]
     Active Substance: IRINOTECAN
     Route: 041
  9. OXALIPLATIN. [Concomitant]
     Active Substance: OXALIPLATIN
     Indication: COLON CANCER STAGE IV
     Route: 041
  10. BEVACIZUMAB. [Suspect]
     Active Substance: BEVACIZUMAB
     Indication: COLON CANCER STAGE IV
     Dosage: TOTAL 6 CYCLES
     Route: 041
  11. FLUOROURACIL. [Concomitant]
     Active Substance: FLUOROURACIL
     Route: 033
  12. CAPECITABINE. [Concomitant]
     Active Substance: CAPECITABINE
     Route: 048
  13. IRINOTECAN [Concomitant]
     Active Substance: IRINOTECAN
     Route: 041
  14. IRINOTECAN [Concomitant]
     Active Substance: IRINOTECAN
     Indication: COLON CANCER STAGE IV
     Route: 041

REACTIONS (11)
  - Epistaxis [Recovering/Resolving]
  - Asthenia [Unknown]
  - Abdominal infection [Recovering/Resolving]
  - Hypoaesthesia [Unknown]
  - Cholinergic syndrome [Unknown]
  - Intestinal perforation [Fatal]
  - Peritonitis [Unknown]
  - Gastrointestinal toxicity [Recovered/Resolved]
  - Haematochezia [Recovering/Resolving]
  - Intestinal obstruction [Unknown]
  - Bone marrow failure [Recovering/Resolving]
